FAERS Safety Report 10873187 (Version 2)
Quarter: 2015Q1

REPORT INFORMATION
  Report Type: Report from Study
  Country: US (occurrence: US)
  Receive Date: 20150227
  Receipt Date: 20150227
  Transmission Date: 20150721
  Serious: Yes (Other)
  Sender: FDA-Public Use
  Company Number: US-JNJFOC-20141205380

PATIENT
  Age: 48 Year
  Sex: Female
  Weight: 72.12 kg

DRUGS (4)
  1. DIOVAN [Concomitant]
     Active Substance: VALSARTAN
     Indication: BLOOD PRESSURE
     Route: 048
  2. AMARYL [Concomitant]
     Active Substance: GLIMEPIRIDE
     Indication: DIABETES MELLITUS
     Route: 065
  3. FENOFIBRATE. [Concomitant]
     Active Substance: FENOFIBRATE
     Indication: BLOOD CHOLESTEROL
     Route: 048
  4. INVOKANA [Suspect]
     Active Substance: CANAGLIFLOZIN
     Indication: TYPE 2 DIABETES MELLITUS
     Route: 048
     Dates: start: 201404

REACTIONS (6)
  - Blood glucose abnormal [Unknown]
  - Dizziness [Unknown]
  - Blood potassium increased [Unknown]
  - Hyperkalaemia [Unknown]
  - Pollakiuria [Unknown]
  - Weight decreased [Unknown]

NARRATIVE: CASE EVENT DATE: 201406
